FAERS Safety Report 4475862-2 (Version None)
Quarter: 2004Q4

REPORT INFORMATION
  Report Type: 
  Country: None (occurrence: None)
  Receive Date: 20041015
  Receipt Date: 20040928
  Transmission Date: 20050328
  Serious: Yes (Hospitalization)
  Sender: FDA-Public Use
  Company Number: US-AMGEN-US089812

PATIENT
  Sex: Male

DRUGS (7)
  1. SENSIPAR [Suspect]
     Indication: HYPERPARATHYROIDISM SECONDARY
     Route: 048
     Dates: start: 20040826, end: 20040903
  2. TYLENOL [Concomitant]
  3. BENAZEPRIL HCL [Concomitant]
     Dates: start: 20030804
  4. NEPHRO-CAPS [Concomitant]
     Dates: start: 20020122
  5. SEVELAMER HCL [Concomitant]
     Dates: start: 20020708
  6. PERCOCET [Concomitant]
     Dates: start: 20040913, end: 20040917
  7. ECOTRIN [Concomitant]
     Dates: start: 20021122

REACTIONS (4)
  - ARTHRALGIA [None]
  - ASPARTATE AMINOTRANSFERASE INCREASED [None]
  - BLOOD ALKALINE PHOSPHATASE INCREASED [None]
  - LYMPHOMA [None]
